FAERS Safety Report 13609018 (Version 1)
Quarter: 2017Q2

REPORT INFORMATION
  Report Type: Spontaneous
  Country: US (occurrence: US)
  Receive Date: 20170602
  Receipt Date: 20170602
  Transmission Date: 20170830
  Serious: No
  Sender: FDA-Public Use
  Company Number: US-009507513-1705USA011931

PATIENT
  Sex: Male

DRUGS (3)
  1. SINEMET [Suspect]
     Active Substance: CARBIDOPA\LEVODOPA
     Dosage: 25/100, UNK
     Route: 048
  2. JUBLIA [Suspect]
     Active Substance: EFINACONAZOLE
     Route: 065
  3. NORTHERA [Suspect]
     Active Substance: DROXIDOPA
     Route: 065

REACTIONS (10)
  - Blood pressure decreased [Unknown]
  - Fatigue [Unknown]
  - Sleep disorder [Unknown]
  - Hypokinesia [Unknown]
  - Asthenia [Unknown]
  - Hypersomnia [Unknown]
  - Neuropathy peripheral [Unknown]
  - Blood pressure fluctuation [Unknown]
  - Fall [Unknown]
  - Dizziness [Unknown]
